FAERS Safety Report 13243344 (Version 1)
Quarter: 2017Q1

REPORT INFORMATION
  Report Type: Spontaneous
  Country: GB (occurrence: GB)
  Receive Date: 20170216
  Receipt Date: 20170216
  Transmission Date: 20170428
  Serious: Yes (Hospitalization)
  Sender: FDA-Public Use
  Company Number: GB-BIOGEN-2017BI00358382

PATIENT
  Sex: Male

DRUGS (1)
  1. FAMPYRA [Suspect]
     Active Substance: DALFAMPRIDINE
     Indication: GAIT DISTURBANCE
     Route: 048
     Dates: start: 20121026

REACTIONS (8)
  - Malaise [Unknown]
  - Constipation [Unknown]
  - Urinary retention [Unknown]
  - Hernia [Unknown]
  - General physical health deterioration [Unknown]
  - Drug dose omission [Unknown]
  - Feeling abnormal [Unknown]
  - Dysphagia [Unknown]
